FAERS Safety Report 6657684-7 (Version None)
Quarter: 2010Q1

REPORT INFORMATION
  Report Type: 
  Country: None (occurrence: None)
  Receive Date: 20100326
  Receipt Date: 20100312
  Transmission Date: 20100710
  Serious: Yes (Death, Hospitalization)
  Sender: FDA-Public Use
  Company Number: KV201000087

PATIENT
  Age: 73 Year
  Sex: Female
  Weight: 56.2 kg

DRUGS (28)
  1. MORPHINE SULFATE [Suspect]
     Indication: PAIN IN EXTREMITY
     Dosage: 60 MG, BID, ORAL
     Route: 048
     Dates: start: 20070624
  2. MORPHINE SULFATE [Suspect]
     Indication: PAIN IN EXTREMITY
     Dosage: 30 MG, BID, ORAL
     Route: 048
     Dates: start: 20070522
  3. MORPHINE SULFATE [Suspect]
     Indication: PAIN IN EXTREMITY
     Dosage: 15 MG, BID, ORAL
     Route: 048
     Dates: start: 20070508
  4. PROTONIX [Concomitant]
  5. ZOCOR [Concomitant]
  6. LISINOPRIL [Concomitant]
  7. PLAVIX [Concomitant]
  8. TOPROL-XL [Concomitant]
  9. ACIPHEX [Concomitant]
  10. ASPIRIN [Concomitant]
  11. PERCOCET [Concomitant]
  12. GABAPENTIN [Concomitant]
  13. CELEXA [Concomitant]
  14. DIAZEPAM [Concomitant]
  15. FOLIC ACID [Concomitant]
  16. PRILOSEC /00661201/ (OMEPRAZOLE) [Concomitant]
  17. RISPERDAL [Concomitant]
  18. IMDUR [Concomitant]
  19. NITROQUICK (GLYCERYL TRINITRATE) [Concomitant]
  20. OXYCODONE HYDROCHLORIDE W/PARACETAMOL (OXYCODONE HYDROCHLORIDE, PARACE [Concomitant]
  21. TRAMADOL HCL [Concomitant]
  22. COLACE (DOCUSATE SODIUM) [Concomitant]
  23. CIPRO [Concomitant]
  24. MIRALAX (MACROGEL) [Concomitant]
  25. CEFTIN [Concomitant]
  26. FERROUS SULFATE TAB [Concomitant]
  27. VITAMIN C /00008001/ (ASCORBIC ACID) [Concomitant]
  28. XANAX [Concomitant]

REACTIONS (69)
  - ABASIA [None]
  - ABDOMINAL PAIN LOWER [None]
  - ACTIVITIES OF DAILY LIVING IMPAIRED [None]
  - ACUTE MYOCARDIAL INFARCTION [None]
  - AGGRESSION [None]
  - AGITATION [None]
  - ALTERED STATE OF CONSCIOUSNESS [None]
  - ARTERIOSCLEROSIS CORONARY ARTERY [None]
  - ASTHENIA [None]
  - BACK PAIN [None]
  - CARDIAC OUTPUT DECREASED [None]
  - CARDIO-RESPIRATORY ARREST [None]
  - CARDIOVASCULAR DISORDER [None]
  - CHROMATURIA [None]
  - CONFUSIONAL STATE [None]
  - CONSTIPATION [None]
  - CONTUSION [None]
  - DEHYDRATION [None]
  - DIARRHOEA [None]
  - DIZZINESS [None]
  - DRY EYE [None]
  - DYSPNOEA [None]
  - DYSURIA [None]
  - EMPHYSEMA [None]
  - ENCEPHALITIS [None]
  - FAECAL INCONTINENCE [None]
  - FALL [None]
  - FATIGUE [None]
  - FLANK PAIN [None]
  - FLUID INTAKE REDUCED [None]
  - GAIT DISTURBANCE [None]
  - HAEMATURIA [None]
  - HEADACHE [None]
  - HEMIPLEGIA [None]
  - HYPERHIDROSIS [None]
  - HYPERTENSION [None]
  - HYPOAESTHESIA [None]
  - HYPOTENSION [None]
  - INCORRECT DOSE ADMINISTERED [None]
  - ISCHAEMIC NEPHROPATHY [None]
  - LETHARGY [None]
  - LEUKOCYTOSIS [None]
  - MENTAL STATUS CHANGES [None]
  - METABOLIC ENCEPHALOPATHY [None]
  - MUSCLE ATROPHY [None]
  - MYELITIS [None]
  - MYELOPATHY [None]
  - NAUSEA [None]
  - NEPHROSCLEROSIS [None]
  - NORMOCHROMIC NORMOCYTIC ANAEMIA [None]
  - PAIN [None]
  - PAIN IN EXTREMITY [None]
  - PANCREATITIS ACUTE [None]
  - PARAPLEGIA [None]
  - PYREXIA [None]
  - REFUSAL OF TREATMENT BY PATIENT [None]
  - RENAL FAILURE ACUTE [None]
  - RENAL FAILURE CHRONIC [None]
  - RHABDOMYOLYSIS [None]
  - ROAD TRAFFIC ACCIDENT [None]
  - SEPTIC SHOCK [None]
  - SOMNOLENCE [None]
  - SYNCOPE [None]
  - TOXIC ENCEPHALOPATHY [None]
  - URINARY RETENTION [None]
  - URINARY TRACT INFECTION [None]
  - URINE OUTPUT DECREASED [None]
  - UROSEPSIS [None]
  - VOMITING [None]
